FAERS Safety Report 5848897-2 (Version None)
Quarter: 2008Q3

REPORT INFORMATION
  Report Type: 
  Country: None (occurrence: None)
  Receive Date: 20080818
  Receipt Date: 20080806
  Transmission Date: 20090109
  Serious: Yes (Other)
  Sender: FDA-Public Use
  Company Number: GB-PFIZER INC-2008066338

PATIENT
  Age: 37 Year
  Sex: Male
  Weight: 57 kg

DRUGS (1)
  1. CHANTIX [Suspect]
     Indication: SMOKING CESSATION THERAPY
     Route: 048
     Dates: start: 20071126, end: 20080201

REACTIONS (4)
  - ACTIVITIES OF DAILY LIVING IMPAIRED [None]
  - FLATULENCE [None]
  - LIBIDO INCREASED [None]
  - THERAPEUTIC RESPONSE UNEXPECTED [None]
